FAERS Safety Report 4681717-0 (Version None)
Quarter: 2005Q2

REPORT INFORMATION
  Report Type: 
  Country: None (occurrence: None)
  Receive Date: 20050603
  Receipt Date: 20050310
  Transmission Date: 20051028
  Serious: Yes (Other)
  Sender: FDA-Public Use
  Company Number: US-MERCK-0503USA02106

PATIENT
  Age: 59 Year
  Sex: Female
  Weight: 59 kg

DRUGS (3)
  1. VIOXX [Suspect]
     Indication: ARTHRALGIA
     Route: 048
     Dates: start: 20000601, end: 20010530
  2. ASPIRIN [Concomitant]
     Route: 065
     Dates: start: 20010101
  3. ZOLOFT [Concomitant]
     Route: 065
     Dates: start: 20010101

REACTIONS (7)
  - CEREBROVASCULAR ACCIDENT [None]
  - DEPRESSION [None]
  - EMOTIONAL DISTRESS [None]
  - HAEMATURIA [None]
  - INTERVERTEBRAL DISC DEGENERATION [None]
  - PAIN [None]
  - TRANSIENT ISCHAEMIC ATTACK [None]
